FAERS Safety Report 8680648 (Version 2)
Quarter: 2013Q1

REPORT INFORMATION
  Report Type: Spontaneous
  Country: US (occurrence: None)
  Receive Date: 20120709
  Receipt Date: 20130312
  Transmission Date: 20140127
  Serious: Yes (Hospitalization)
  Sender: FDA-Public Use
  Company Number: 2012032779

PATIENT
  Age: 70 Year
  Sex: Male
  Weight: 81.65 kg

DRUGS (14)
  1. PRIVIGEN [Suspect]
     Indication: CHRONIC INFLAMMATORY DEMYELINATING POLYRADICULONEUROPATHY
     Dosage: (35 G 1X/WEEK, 5 GM VIAL INTRAVENOUS (NOT OTHERWISE SPECIFIED))
     Route: 042
     Dates: start: 20120626, end: 20120626
  2. LOVENOX [Concomitant]
  3. RAMIPRIL [Concomitant]
  4. ATENOLOL (ATENOLOL) [Concomitant]
  5. PREVACID [Concomitant]
  6. ASPIRIN [Concomitant]
  7. ACETAMINOPHEN (PARACETAMOL) [Concomitant]
  8. DIPHENHYDRAMINE HYDROCHLORIDE [Concomitant]
  9. LIDOCAINE PRILOCAINE (EMLA /00675501/) [Concomitant]
  10. SODIUM CHLORIDE [Concomitant]
  11. PROMETHAZINE [Concomitant]
  12. EPIPEN [Concomitant]
  13. SOLU-CORTEF [Concomitant]
  14. MYCOPHENOLATE (MYCOPHENOLATE SODIUM) [Concomitant]

REACTIONS (3)
  - Lung disorder [None]
  - Mobility decreased [None]
  - Immobile [None]
